FAERS Safety Report 5916231-5 (Version None)
Quarter: 2008Q4

REPORT INFORMATION
  Report Type: 
  Country: None (occurrence: None)
  Receive Date: 20081013
  Receipt Date: 20080522
  Transmission Date: 20090506
  Serious: Yes (Death, Hospitalization)
  Sender: FDA-Public Use
  Company Number: FR-AVENTIS-200811887FR

PATIENT
  Age: 49 Year
  Sex: Male

DRUGS (3)
  1. LOVENOX [Suspect]
     Route: 058
     Dates: start: 20080430, end: 20080501
  2. CALCIPARINE [Suspect]
     Route: 058
     Dates: start: 20080423, end: 20080430
  3. CALCIPARINE [Suspect]
     Indication: AORTIC VALVE REPLACEMENT
     Route: 058
     Dates: start: 20080423, end: 20080430

REACTIONS (3)
  - DEEP VEIN THROMBOSIS [None]
  - PULMONARY EMBOLISM [None]
  - THROMBOCYTOPENIA [None]
